FAERS Safety Report 23551378 (Version 4)
Quarter: 2024Q2

REPORT INFORMATION
  Report Type: Other
  Country: DE (occurrence: None)
  Receive Date: 20240222
  Receipt Date: 20240510
  Transmission Date: 20240716
  Serious: Yes (Death, Hospitalization)
  Sender: FDA-Public Use
  Company Number: DE-ROCHE-3509049

PATIENT
  Age: 54 Year
  Sex: Male

DRUGS (10)
  1. RITUXIMAB [Suspect]
     Active Substance: RITUXIMAB
     Indication: Follicular lymphoma
     Dosage: ON 22/JAN/2024, LAST DOSE OF RITUXIMAB WAS ADMINISTERED PRIOR TO THE AE
     Route: 041
     Dates: start: 20231123
  2. CYCLOPHOSPHAMIDE [Suspect]
     Active Substance: CYCLOPHOSPHAMIDE
     Indication: Follicular lymphoma
     Dosage: ON 22/JAN/2024, LAST DOSE OF CYCLOPHOSPHAMIDE WAS ADMINISTERED PRIOR TO THE AE
     Route: 042
     Dates: start: 20231123
  3. ADRIAMYCIN [Suspect]
     Active Substance: DOXORUBICIN HYDROCHLORIDE
     Indication: Follicular lymphoma
     Dosage: ON 23/JAN/2024, LAST DOSE OF DOXORUBICIN WAS ADMINISTERED PRIOR TO THE AE
     Route: 042
     Dates: start: 20231207
  4. PREDNISOLONE [Suspect]
     Active Substance: PREDNISOLONE
     Indication: Follicular lymphoma
     Route: 065
     Dates: start: 20231208
  5. VINCRISTINE [Suspect]
     Active Substance: VINCRISTINE
     Indication: Follicular lymphoma
     Dosage: ON 23/JAN/2024, LAST DOSE OF VINCRISTINE WAS ADMINISTERED PRIOR TO THE AE
     Route: 042
     Dates: start: 20231207
  6. ACYCLOVIR [Concomitant]
     Active Substance: ACYCLOVIR
     Dates: start: 20231206
  7. PANTOPRAZOLE SODIUM [Concomitant]
     Active Substance: PANTOPRAZOLE SODIUM
     Dates: start: 20231206
  8. NEULASTA [Concomitant]
     Active Substance: PEGFILGRASTIM
  9. MESNA [Concomitant]
     Active Substance: MESNA
     Dates: start: 20231207
  10. SULFAMETHOXAZOLE\TRIMETHOPRIM [Concomitant]
     Active Substance: SULFAMETHOXAZOLE\TRIMETHOPRIM
     Dates: start: 20231207

REACTIONS (7)
  - Sepsis [Fatal]
  - Disease progression [Fatal]
  - Cancer fatigue [Recovering/Resolving]
  - Dysphagia [Recovering/Resolving]
  - Febrile neutropenia [Recovered/Resolved]
  - Oral candidiasis [Recovering/Resolving]
  - General physical health deterioration [Not Recovered/Not Resolved]

NARRATIVE: CASE EVENT DATE: 20240128
